FAERS Safety Report 10085866 (Version 1)
Quarter: 2014Q2

REPORT INFORMATION
  Report Type: Spontaneous
  Country: US (occurrence: US)
  Receive Date: 20140418
  Receipt Date: 20140418
  Transmission Date: 20141212
  Serious: No
  Sender: FDA-Public Use
  Company Number: US-PFIZER INC-2014108701

PATIENT
  Age: 62 Year
  Sex: Male
  Weight: 69.84 kg

DRUGS (26)
  1. CHANTIX [Suspect]
     Indication: SMOKING CESSATION THERAPY
     Dosage: 0.5 MG, 1X/DAY
     Route: 048
     Dates: start: 201404, end: 201404
  2. CHANTIX [Suspect]
     Dosage: 1 MG, 2X/DAY
     Route: 048
     Dates: start: 201404
  3. FUROSEMIDE [Concomitant]
     Dosage: UNK
  4. SPIRONOLACTONE [Concomitant]
     Dosage: UNK
  5. FOLIC ACID [Concomitant]
     Dosage: UNK
  6. PROTONIX [Concomitant]
     Dosage: UNK
  7. ROPINIROLE [Concomitant]
     Dosage: UNK
  8. CARVEDILOL [Concomitant]
     Dosage: UNK
  9. ENALAPRIL [Concomitant]
     Dosage: UNK
  10. SOTALOL [Concomitant]
     Dosage: UNK
  11. WARFARIN [Concomitant]
     Dosage: UNK
  12. NITROSTAT [Concomitant]
     Dosage: UNK, AS NEEDED
  13. ZOLPIDEM [Concomitant]
     Dosage: UNK
  14. SYMBICORT [Concomitant]
     Dosage: UNK
  15. OXYCODONE [Concomitant]
     Dosage: UNK
  16. LATANOPROST [Concomitant]
     Dosage: UNK
  17. DIGOXIN [Concomitant]
     Dosage: UNK
  18. NORVASC [Concomitant]
     Dosage: UNK
  19. CLOPIDOGREL [Concomitant]
     Dosage: UNK
  20. ATORVASTATIN [Concomitant]
     Dosage: UNK
  21. ASPIRIN [Concomitant]
     Dosage: UNK, 1X/DAY
  22. DOC-Q-LACE [Concomitant]
     Dosage: UNK
  23. SPIRIVA [Concomitant]
     Dosage: UNK
  24. SINGULAIR [Concomitant]
     Dosage: UNK
  25. VENTOLIN [Concomitant]
     Dosage: UNK
  26. ISOSORBIDE MONONITRATE [Concomitant]
     Dosage: UNK

REACTIONS (1)
  - Malaise [Recovered/Resolved]
